FAERS Safety Report 6632186-2 (Version None)
Quarter: 2010Q1

REPORT INFORMATION
  Report Type: 
  Country: None (occurrence: None)
  Receive Date: 20100312
  Receipt Date: 20100304
  Transmission Date: 20100710
  Serious: No
  Sender: FDA-Public Use
  Company Number: US-MYLANLABS-2010S1002981

PATIENT
  Age: 15 Year
  Sex: Female

DRUGS (2)
  1. AMNESTEEM [Suspect]
     Route: 048
     Dates: start: 20100107
  2. AMNESTEEM [Suspect]
     Route: 048
     Dates: start: 20100107

REACTIONS (1)
  - PREGNANCY TEST FALSE POSITIVE [None]
